FAERS Safety Report 11031420 (Version 1)
Quarter: 2015Q2

REPORT INFORMATION
  Report Type: Spontaneous
  Country: US (occurrence: US)
  Receive Date: 20150415
  Receipt Date: 20150415
  Transmission Date: 20150821
  Serious: No
  Sender: FDA-Public Use
  Company Number: US-GLAXOSMITHKLINE-US2015GSK050225

PATIENT
  Sex: Female

DRUGS (1)
  1. BUPROPION HYDROCHLORIDE MODIFIED-RELEASE TABLET [Suspect]
     Active Substance: BUPROPION HYDROCHLORIDE
     Indication: DEPRESSION
     Dosage: 100 MG, U
     Route: 048
     Dates: start: 2001

REACTIONS (2)
  - Drug hypersensitivity [Unknown]
  - Dizziness [Unknown]
